FAERS Safety Report 19577592 (Version 1)
Quarter: 2021Q3

REPORT INFORMATION
  Report Type: Spontaneous
  Country: GB (occurrence: GB)
  Receive Date: 20210719
  Receipt Date: 20210719
  Transmission Date: 20211014
  Serious: Yes (Disabling)
  Sender: FDA-Public Use
  Company Number: GB-PERRIGO-21GB009101

PATIENT

DRUGS (3)
  1. IBUPROFEN. [Suspect]
     Active Substance: IBUPROFEN
     Indication: PRODUCT USED FOR UNKNOWN INDICATION
     Route: 065
  2. VACCINES [Suspect]
     Active Substance: UNSPECIFIED INGREDIENT
     Dosage: DOSE 1
     Dates: start: 20210429
  3. VACCINES [Suspect]
     Active Substance: UNSPECIFIED INGREDIENT
     Dosage: DOSE 2
     Dates: start: 20210702

REACTIONS (6)
  - Headache [Recovering/Resolving]
  - Nausea [Recovering/Resolving]
  - Influenza [Recovering/Resolving]
  - Pyrexia [Recovered/Resolved]
  - Axillary pain [Not Recovered/Not Resolved]
  - Chills [Recovered/Resolved]

NARRATIVE: CASE EVENT DATE: 20210702
